FAERS Safety Report 5699598-5 (Version None)
Quarter: 2008Q2

REPORT INFORMATION
  Report Type: 
  Country: None (occurrence: None)
  Receive Date: 20080410
  Receipt Date: 20070405
  Transmission Date: 20081010
  Serious: No
  Sender: FDA-Public Use
  Company Number: US-KINGPHARMUSA00001-K200700446

PATIENT

DRUGS (1)
  1. THROMBIN-JMI [Suspect]
     Route: 061
     Dates: start: 20070403, end: 20070403

REACTIONS (1)
  - HAEMATOMA [None]
